FAERS Safety Report 4873191-6 (Version None)
Quarter: 2005Q4

REPORT INFORMATION
  Report Type: 
  Country: None (occurrence: None)
  Receive Date: 20051201
  Receipt Date: 20050802
  Transmission Date: 20060501
  Serious: No
  Sender: FDA-Public Use
  Company Number: 2005PV000877

PATIENT
  Age: 53 Year
  Sex: Male
  Weight: 84.8226 kg

DRUGS (9)
  1. BYETTA [Suspect]
     Indication: DIABETES MELLITUS NON-INSULIN-DEPENDENT
     Dosage: 5 MCG; BID, SC
     Route: 058
     Dates: start: 20050801, end: 20050802
  2. LISINOPRIL [Concomitant]
  3. ECOTRIN [Concomitant]
  4. METFORMIKN [Concomitant]
  5. CENTRUM [Concomitant]
  6. VALTREX [Concomitant]
  7. CIALIC ^LILLY^ [Concomitant]
  8. AMOXICILLIN [Concomitant]
  9. DAYPRO [Concomitant]

REACTIONS (9)
  - ABNORMAL SENSATION IN EYE [None]
  - DISORIENTATION [None]
  - DIZZINESS [None]
  - EYE IRRITATION [None]
  - HEADACHE [None]
  - HYPERHIDROSIS [None]
  - PERIPHERAL COLDNESS [None]
  - SOMNOLENCE [None]
  - VISION BLURRED [None]
